FAERS Safety Report 10885003 (Version 1)
Quarter: 2015Q1

REPORT INFORMATION
  Report Type: Spontaneous
  Country: CH (occurrence: None)
  Receive Date: 20150227
  Receipt Date: 20150227
  Transmission Date: 20150721
  Serious: Yes (Life-Threatening)
  Sender: FDA-Public Use
  Company Number: 20150105

PATIENT
  Age: 58 Year
  Sex: Female

DRUGS (7)
  1. SYMBICORT (FORMOTEROL FUMARATE, BUDENOSIDE/FORMOTEROL FUMARATE DIHYDRATE) [Concomitant]
  2. FLACAINE (FLECAINIDE ACETATE) [Concomitant]
  3. VENTOLIN (SALBUTAMOL, SALBUTOMAL SULFATE) [Concomitant]
  4. FERINJECT [Suspect]
     Active Substance: FERRIC CARBOXYMALTOSE
     Indication: PRODUCT USED FOR UNKNOWN INDICATION
     Dosage: DOSE UNKNOWN, INTRAVENOUS DRIP?
     Route: 041
     Dates: start: 20150124, end: 20150124
  5. INEXIUM (ESOMEPRAZOLE MAGNESIUM) [Concomitant]
     Active Substance: ESOMEPRAZOLE MAGNESIUM
  6. ORACILLINE (PHENOXYMETHYLPENICILLIN BENZATHINE) [Concomitant]
  7. SINGULAIR [Concomitant]
     Active Substance: MONTELUKAST SODIUM

REACTIONS (5)
  - Rash generalised [None]
  - Contraindicated drug administered [None]
  - Bronchospasm [None]
  - Urticaria [None]
  - Off label use [None]

NARRATIVE: CASE EVENT DATE: 20150124
